FAERS Safety Report 18790419 (Version 5)
Quarter: 2021Q4

REPORT INFORMATION
  Report Type: Spontaneous
  Country: JP (occurrence: JP)
  Receive Date: 20210126
  Receipt Date: 20211108
  Transmission Date: 20220304
  Serious: Yes (Hospitalization)
  Sender: FDA-Public Use
  Company Number: JP-KYOWAKIRIN-2021AKK001158

PATIENT

DRUGS (136)
  1. POTELIGEO [Suspect]
     Active Substance: MOGAMULIZUMAB-KPKC
     Indication: Adult T-cell lymphoma/leukaemia
     Dosage: 69.1 MG, QD
     Route: 041
     Dates: start: 20200601
  2. HERBALS [Concomitant]
     Active Substance: HERBALS
     Dosage: 2 DF, BID, AFTER BREAKFAST AND DINNER
     Route: 048
     Dates: start: 20200520, end: 20200621
  3. HERBALS [Concomitant]
     Active Substance: HERBALS
     Dosage: 2 DF, BID, AFTER BREAKFAST AND DINNER
     Route: 048
     Dates: start: 20200626, end: 20201016
  4. HERBALS [Concomitant]
     Active Substance: HERBALS
     Dosage: 126 MG, BID, AFTER BREAKFAST AND DINNER
     Route: 048
     Dates: start: 20201125
  5. TAMSULOSIN HYDROCHLORIDE [Concomitant]
     Active Substance: TAMSULOSIN HYDROCHLORIDE
     Dosage: 0.2 MG, QD, AFTER BREAKFAST
     Route: 048
     Dates: start: 20200520, end: 20200621
  6. TAMSULOSIN HYDROCHLORIDE [Concomitant]
     Active Substance: TAMSULOSIN HYDROCHLORIDE
     Dosage: 0.2 MG, QD, AFTER BREAKFAST
     Route: 048
     Dates: start: 20200626, end: 20201016
  7. TAMSULOSIN HYDROCHLORIDE [Concomitant]
     Active Substance: TAMSULOSIN HYDROCHLORIDE
     Dosage: 0.2 MG, QD, AFTER BREAKFAST
     Route: 048
     Dates: start: 20201125
  8. HYALURONATE SODIUM [Concomitant]
     Active Substance: HYALURONATE SODIUM
     Dosage: UNK, MORE THAN 4 TIMES/DAY
     Route: 047
     Dates: start: 20200520, end: 20200617
  9. HYALURONATE SODIUM [Concomitant]
     Active Substance: HYALURONATE SODIUM
     Dosage: UNK, MORE THAN 4 TIMES/DAY
     Route: 047
     Dates: start: 20200626, end: 20200724
  10. PIRENOXINE [Concomitant]
     Active Substance: PIRENOXINE
     Dosage: UNK, QID
     Route: 047
     Dates: start: 20200520, end: 20200617
  11. PIRENOXINE [Concomitant]
     Active Substance: PIRENOXINE
     Dosage: UNK, QID
     Route: 047
     Dates: start: 20200626, end: 20200926
  12. PIRENOXINE [Concomitant]
     Active Substance: PIRENOXINE
     Dosage: UNK, QID
     Route: 047
     Dates: start: 20201001, end: 20201018
  13. PIRENOXINE [Concomitant]
     Active Substance: PIRENOXINE
     Dosage: UNK, QID
     Route: 047
     Dates: start: 20201125
  14. LATANOPROST [Concomitant]
     Active Substance: LATANOPROST
     Dosage: UNK UNK, QD, IN THE EVENING
     Route: 047
     Dates: start: 20200520, end: 20200617
  15. LATANOPROST [Concomitant]
     Active Substance: LATANOPROST
     Dosage: UNK UNK, QD, IN THE EVENING
     Route: 047
     Dates: start: 20200626, end: 20200724
  16. VONOPRAZAN FUMARATE [Concomitant]
     Active Substance: VONOPRAZAN FUMARATE
     Dosage: 20 MG, QD, AFTER DINNER
     Route: 048
     Dates: start: 20200526, end: 20200529
  17. VONOPRAZAN FUMARATE [Concomitant]
     Active Substance: VONOPRAZAN FUMARATE
     Dosage: 20 MG, QD, AFTER BREAKFAST
     Route: 048
     Dates: start: 20200530, end: 20200612
  18. FEBUXOSTAT [Concomitant]
     Active Substance: FEBUXOSTAT
     Dosage: 40 MG, QD, AFTER DINNER
     Route: 048
     Dates: start: 20200526, end: 20200529
  19. FEBUXOSTAT [Concomitant]
     Active Substance: FEBUXOSTAT
     Dosage: 40 MG, QD, AFTER BREAKFAST
     Route: 048
     Dates: start: 20200530, end: 20200612
  20. ACYCLOVIR [Concomitant]
     Active Substance: ACYCLOVIR
     Dosage: 1 DF, QD,AFTER DINNER
     Route: 048
     Dates: start: 20200526, end: 20200529
  21. ACYCLOVIR [Concomitant]
     Active Substance: ACYCLOVIR
     Dosage: 1 DF, QD, AFTER BREAKFAST
     Route: 048
     Dates: start: 20200530, end: 20200612
  22. LEVOFLOXACIN HEMIHYDRATE [Concomitant]
     Active Substance: LEVOFLOXACIN
     Dosage: 500 MG, QD, AFTER DINNER
     Route: 048
     Dates: start: 20200526, end: 20200529
  23. LEVOFLOXACIN HEMIHYDRATE [Concomitant]
     Active Substance: LEVOFLOXACIN
     Dosage: 500 MG, QD, AFTER BREAKFAST
     Route: 048
     Dates: start: 20200530, end: 20200612
  24. DIFLUCAN [Concomitant]
     Active Substance: FLUCONAZOLE
     Dosage: 100 MG, QD, AFTER DINNER
     Route: 048
     Dates: start: 20200526, end: 20200529
  25. DIFLUCAN [Concomitant]
     Active Substance: FLUCONAZOLE
     Dosage: 100 MG, QD, AFTER BREAKFAST
     Route: 048
     Dates: start: 20200530, end: 20200612
  26. SULFAMETHOXAZOLE\TRIMETHOPRIM [Concomitant]
     Active Substance: SULFAMETHOXAZOLE\TRIMETHOPRIM
     Dosage: 1 DF, QD, AFTER DINNER
     Route: 048
     Dates: start: 20200526, end: 20200529
  27. SULFAMETHOXAZOLE\TRIMETHOPRIM [Concomitant]
     Active Substance: SULFAMETHOXAZOLE\TRIMETHOPRIM
     Dosage: 1 DF, QD, AFTER BREAKFAST
     Route: 048
     Dates: start: 20200530, end: 20200612
  28. SULFAMETHOXAZOLE\TRIMETHOPRIM [Concomitant]
     Active Substance: SULFAMETHOXAZOLE\TRIMETHOPRIM
     Dosage: 2 DF, BID, AFTER BREAKFAST AND DINNER ON MONDAY AND THURSDAY
     Route: 048
     Dates: start: 20200713, end: 20200827
  29. ACETAMINOPHEN [Concomitant]
     Active Substance: ACETAMINOPHEN
     Dosage: 400 MG, QD
     Route: 048
     Dates: start: 20200601, end: 20200601
  30. ACETAMINOPHEN [Concomitant]
     Active Substance: ACETAMINOPHEN
     Dosage: 400 MG, QD
     Route: 048
     Dates: start: 20200609, end: 20200609
  31. PREDONINE [Concomitant]
     Active Substance: PREDNISOLONE
     Dosage: QD, AFTER BREAKFAST AND DINNER
     Route: 048
     Dates: start: 20200527, end: 20200531
  32. PREDONINE [Concomitant]
     Active Substance: PREDNISOLONE
     Dosage: BID, AFTER BREAKFAST AND LUNCH
     Route: 048
     Dates: start: 20200610, end: 20200614
  33. PREDONINE [Concomitant]
     Active Substance: PREDNISOLONE
     Dosage: 30 MG, QD, AFTER DINNER
     Route: 048
     Dates: start: 20200626, end: 20200626
  34. PREDONINE [Concomitant]
     Active Substance: PREDNISOLONE
     Dosage: 15 MG, BID, AFTER BREAKFAST AND DINNER
     Route: 048
     Dates: start: 20200627, end: 20200703
  35. PREDONINE [Concomitant]
     Active Substance: PREDNISOLONE
     Dosage: 10 MG, BID, AFTER BREAKFAST AND DINNER
     Route: 048
     Dates: start: 20200704, end: 20200704
  36. PREDONINE [Concomitant]
     Active Substance: PREDNISOLONE
     Dosage: 10 MG, TID, AFTER BREAKFAST, LUNCH AND DINNER
     Route: 048
     Dates: start: 20200705, end: 20200705
  37. PREDONINE [Concomitant]
     Active Substance: PREDNISOLONE
     Dosage: 15 MG, BID, AFTER BREAKFAST AND DINNER
     Route: 048
     Dates: start: 20200706, end: 20200710
  38. PREDONINE [Concomitant]
     Active Substance: PREDNISOLONE
     Dosage: 30 MG, BID, AFTER BREAKFAST AND LUNCH
     Route: 048
     Dates: start: 20200711, end: 20200715
  39. PREDONINE [Concomitant]
     Active Substance: PREDNISOLONE
     Dosage: 25 MG, BID, AFTER BREAKFAST AND LUNCH
     Route: 048
     Dates: start: 20200716, end: 20200720
  40. PREDONINE [Concomitant]
     Active Substance: PREDNISOLONE
     Dosage: 20 MG, BID, AFTER BREAKFAST AND LUNCH
     Route: 048
     Dates: start: 20200721, end: 20200725
  41. PREDONINE [Concomitant]
     Active Substance: PREDNISOLONE
     Dosage: 15 MG, BID, AFTER BREAKFAST AND LUNCH
     Route: 048
     Dates: start: 20200726, end: 20200730
  42. PREDONINE [Concomitant]
     Active Substance: PREDNISOLONE
     Dosage: 10 MG, BID, AFTER BREAKFAST AND LUNCH
     Route: 048
     Dates: start: 20200731, end: 20200807
  43. PREDONINE [Concomitant]
     Active Substance: PREDNISOLONE
     Dosage: BID, AFTER BREAKFAST AND LUNCH
     Route: 048
     Dates: start: 20200808, end: 20200814
  44. PREDONINE [Concomitant]
     Active Substance: PREDNISOLONE
     Dosage: 10 MG, QD, AFTER BREAKFAST
     Route: 048
     Dates: start: 20200815, end: 20200821
  45. PREDONINE [Concomitant]
     Active Substance: PREDNISOLONE
     Dosage: 10 MG, BID, AFTER BREAKFAST AND LUNCH
     Route: 048
     Dates: start: 20200822, end: 20200825
  46. PREDONINE [Concomitant]
     Active Substance: PREDNISOLONE
     Dosage: 30 MG, BID, AFTER BREAKFAST AND LUNCH
     Route: 048
     Dates: start: 20200826, end: 20200827
  47. PREDONINE [Concomitant]
     Active Substance: PREDNISOLONE
     Dosage: 30 MG, BID, AFTER BREAKFAST AND LUNCH
     Route: 048
     Dates: start: 20200831, end: 20200908
  48. PREDONINE [Concomitant]
     Active Substance: PREDNISOLONE
     Dosage: 30 MG, BID, AFTER BREAKFAST AND LUNCH
     Route: 048
     Dates: start: 20200912, end: 20200923
  49. PREDONINE [Concomitant]
     Active Substance: PREDNISOLONE
     Dosage: 25 MG, BID, AFTER BREAKFAST AND LUNCH
     Route: 048
     Dates: start: 20200924, end: 20201007
  50. PREDONINE [Concomitant]
     Active Substance: PREDNISOLONE
     Dosage: 20 MG, BID, AFTER BREAKFAST AND LUNCH
     Route: 048
     Dates: start: 20201008, end: 20201016
  51. PREDONINE [Concomitant]
     Active Substance: PREDNISOLONE
     Dosage: BID, AFTER BREAKFAST AND LUNCH
     Route: 048
     Dates: start: 20201028
  52. PREDONINE [Concomitant]
     Active Substance: PREDNISOLONE
     Dosage: 15 MG, BID, AFTER BREAKFAST AND LUNCH
     Route: 048
     Dates: start: 20201111
  53. PREDONINE [Concomitant]
     Active Substance: PREDNISOLONE
     Dosage: BID, AFTER BREAKFAST AND LUNCH
     Route: 048
     Dates: start: 20201125
  54. PREDONINE [Concomitant]
     Active Substance: PREDNISOLONE
     Dosage: BID, AFTER BREAKFAST AND LUNCH
     Route: 048
     Dates: start: 20201209
  55. PREDONINE [Concomitant]
     Active Substance: PREDNISOLONE
     Dosage: BID, AFTER BREAKFAST AND LUNCH
     Route: 048
     Dates: start: 20201223
  56. PREDONINE [Concomitant]
     Active Substance: PREDNISOLONE
     Dosage: BID, AFTER BREAKFAST AND LUNCH
     Route: 048
     Dates: start: 20210106
  57. PREDONINE [Concomitant]
     Active Substance: PREDNISOLONE
     Dosage: 10 MG, BID, AFTER BREAKFAST AND LUNCH
     Route: 048
     Dates: start: 20210127
  58. PREDONINE [Concomitant]
     Active Substance: PREDNISOLONE
     Dosage: 10 MG, BID, AFTER BREAKFAST AND LUNCH
     Route: 048
     Dates: start: 20210224
  59. SODIUM GUALENATE [Concomitant]
     Active Substance: SODIUM GUALENATE
     Dosage: UNK, SEVERAL TIMES/DAY
     Route: 048
     Dates: start: 20200531, end: 20200623
  60. SODIUM GUALENATE [Concomitant]
     Active Substance: SODIUM GUALENATE
     Dosage: UNK, SEVERAL TIMES/DAY
     Route: 048
     Dates: start: 20200626, end: 20200705
  61. SODIUM GUALENATE [Concomitant]
     Active Substance: SODIUM GUALENATE
     Dosage: UNK, SEVERAL TIMES/DAY
     Route: 048
     Dates: start: 20200708, end: 20200806
  62. XYLOCAINE [Concomitant]
     Active Substance: LIDOCAINE HYDROCHLORIDE
     Dosage: UNK
     Route: 065
     Dates: start: 20200601, end: 20200601
  63. XYLOCAINE [Concomitant]
     Active Substance: LIDOCAINE HYDROCHLORIDE
     Dosage: UNK
     Route: 065
     Dates: start: 20200604, end: 20200604
  64. XYLOCAINE [Concomitant]
     Active Substance: LIDOCAINE HYDROCHLORIDE
     Dosage: UNK
     Route: 065
     Dates: start: 20200610, end: 20200610
  65. XYLOCAINE [Concomitant]
     Active Substance: LIDOCAINE HYDROCHLORIDE
     Dosage: UNK
     Route: 065
     Dates: start: 20200702, end: 20200702
  66. XYLOCAINE [Concomitant]
     Active Substance: LIDOCAINE HYDROCHLORIDE
     Dosage: UNK
     Route: 065
     Dates: start: 20200705, end: 20200705
  67. GUAIAZULENE [Concomitant]
     Active Substance: GUAIAZULENE
     Dosage: UNK, SEVERAL TIMES/DAY
     Route: 061
     Dates: start: 20200531, end: 20200623
  68. GUAIAZULENE [Concomitant]
     Active Substance: GUAIAZULENE
     Dosage: UNK, SEVERAL TIMES/DAY
     Route: 061
     Dates: start: 20200626, end: 20200629
  69. GUAIAZULENE [Concomitant]
     Active Substance: GUAIAZULENE
     Dosage: UNK, SEVERAL TIMES/DAY
     Route: 061
     Dates: start: 20200708, end: 20200806
  70. GUAIAZULENE [Concomitant]
     Active Substance: GUAIAZULENE
     Dosage: UNK, SEVERAL TIMES/DAY
     Route: 061
     Dates: start: 20200916, end: 20200923
  71. GUAIAZULENE [Concomitant]
     Active Substance: GUAIAZULENE
     Dosage: UNK UNK, TID
     Route: 061
     Dates: start: 20201002, end: 20201018
  72. POLAPREZINC [Concomitant]
     Active Substance: POLAPREZINC
     Dosage: UNK UNK, BID, BEFORE DINNER AND BEDTIME
     Route: 048
     Dates: start: 20200601, end: 20200601
  73. POLAPREZINC [Concomitant]
     Active Substance: POLAPREZINC
     Dosage: UNK UNK, QID, BEFORE EVERY MEAL AND BEDTIME
     Route: 048
     Dates: start: 20200602, end: 20200605
  74. POLAPREZINC [Concomitant]
     Active Substance: POLAPREZINC
     Dosage: UNK UNK, QD, BEFORE BREAKFAST
     Route: 048
     Dates: start: 20200606, end: 20200606
  75. POLAPREZINC [Concomitant]
     Active Substance: POLAPREZINC
     Dosage: UNK UNK, QID, BEFORE EVERY MEAL AND BED TIME
     Route: 048
     Dates: start: 20200610, end: 20200614
  76. SODIUM ALGINATE [Concomitant]
     Active Substance: SODIUM ALGINATE
     Dosage: UNK UNK, BID
     Route: 048
     Dates: start: 20200601, end: 20200601
  77. SODIUM ALGINATE [Concomitant]
     Active Substance: SODIUM ALGINATE
     Dosage: UNK UNK, QID, BEFORE EVERY MEAL AND BED TIME
     Route: 048
     Dates: start: 20200602, end: 20200605
  78. SODIUM ALGINATE [Concomitant]
     Active Substance: SODIUM ALGINATE
     Dosage: UNK UNK, QD
     Route: 048
     Dates: start: 20200606, end: 20200606
  79. SODIUM ALGINATE [Concomitant]
     Active Substance: SODIUM ALGINATE
     Dosage: UNK UNK, QID, BEFORE EVERY MEAL AND BED TIME
     Route: 048
     Dates: start: 20200610, end: 20200614
  80. METHYLCOBALAMIN [Concomitant]
     Active Substance: METHYLCOBALAMIN
     Dosage: 500 UG, TID, AFTER EVERY MEAL
     Route: 048
     Dates: start: 20200607, end: 20200612
  81. METHYLCOBALAMIN [Concomitant]
     Active Substance: METHYLCOBALAMIN
     Dosage: 500 UG, TID, AFTER EVERY MEAL
     Route: 048
     Dates: start: 20200626, end: 20201016
  82. METHYLCOBALAMIN [Concomitant]
     Active Substance: METHYLCOBALAMIN
     Dosage: 500 UG, TID, AFTER EVERY MEAL
     Route: 048
     Dates: start: 20201125
  83. DIPHENHYDRAMINE [Concomitant]
     Active Substance: DIPHENHYDRAMINE
     Dosage: UNK UNK, BID
     Route: 061
     Dates: start: 20200626, end: 20200724
  84. DERMOSOL G [Concomitant]
     Dosage: UNK UNK, BID
     Route: 061
     Dates: start: 20200626, end: 20200724
  85. GLUTAMINE\SODIUM GUALENATE [Concomitant]
     Active Substance: GLUTAMINE\SODIUM GUALENATE
     Dosage: 0.5 G, TID, AFTER EACH MEAL
     Route: 048
     Dates: start: 20200626, end: 20201016
  86. HYALURONATE SODIUM [Concomitant]
     Active Substance: HYALURONATE SODIUM
     Dosage: UNK UNK, QID
     Route: 047
     Dates: start: 20200626, end: 20200926
  87. HYALURONATE SODIUM [Concomitant]
     Active Substance: HYALURONATE SODIUM
     Dosage: UNK UNK, QID
     Route: 047
     Dates: start: 20201001, end: 20201018
  88. XALATAN [Concomitant]
     Active Substance: LATANOPROST
     Dosage: UNK UNK, QD
     Route: 047
     Dates: start: 20200626, end: 20200724
  89. XALATAN [Concomitant]
     Active Substance: LATANOPROST
     Dosage: UNK UNK, QD, IN THE LATE AFTERNOON
     Route: 047
     Dates: start: 20200710, end: 20200926
  90. XALATAN [Concomitant]
     Active Substance: LATANOPROST
     Dosage: UNK UNK, QD, IN THE LATE AFTERNOON
     Route: 047
     Dates: start: 20201001
  91. MASKIN [Concomitant]
     Dosage: UNK UNK, QD
     Route: 065
     Dates: start: 20200626, end: 20200725
  92. GENTAMICIN SULFATE [Concomitant]
     Active Substance: GENTAMICIN SULFATE
     Dosage: UNK UNK, QD
     Route: 061
     Dates: start: 20200626, end: 20200725
  93. GENTAMICIN SULFATE [Concomitant]
     Active Substance: GENTAMICIN SULFATE
     Dosage: UNK UNK, QD
     Route: 061
     Dates: start: 20200908, end: 20201007
  94. OLOPATADINE HYDROCHLORIDE OD [Concomitant]
     Dosage: 5 MG, BID, AFTER BREAKFAST AND BEFORE BEDTIME
     Route: 048
     Dates: start: 20200626, end: 20200825
  95. OLOPATADINE HYDROCHLORIDE OD [Concomitant]
     Dosage: 10 MG, BID, AFTER BREAKFAST AND BEFORE BEDTIME
     Route: 048
     Dates: start: 20200826, end: 20200914
  96. OLOPATADINE HYDROCHLORIDE OD [Concomitant]
     Dosage: 5 MG, QD, BEFORE BEDTIME
     Route: 048
     Dates: start: 20200723, end: 20200723
  97. OLOPATADINE HYDROCHLORIDE OD [Concomitant]
     Dosage: 5 MG, QD, BEFORE BEDTIME
     Route: 048
     Dates: start: 20200828, end: 20200828
  98. CEFACLOR [Concomitant]
     Active Substance: CEFACLOR
     Dosage: 250 MG, QD, AFTER DINNER
     Route: 048
     Dates: start: 20200626, end: 20200626
  99. CEFACLOR [Concomitant]
     Active Substance: CEFACLOR
     Dosage: 250 MG, TID, AFTER EACH MEAL
     Route: 048
     Dates: start: 20200627, end: 20200628
  100. CEFACLOR [Concomitant]
     Active Substance: CEFACLOR
     Dosage: 250 MG, BID, AFTER BREAKFAST AND LUNCH
     Route: 048
     Dates: start: 20200629, end: 20200629
  101. ESOMEPRAZOLE MAGNESIUM [Concomitant]
     Active Substance: ESOMEPRAZOLE MAGNESIUM
     Dosage: 20 MG, QD, AFTER BREAKFAST
     Route: 048
     Dates: start: 20200711, end: 20201016
  102. DEXAMETHASONE [Concomitant]
     Active Substance: DEXAMETHASONE
     Dosage: UNK, SEVERAL TIMES A DAY
     Route: 061
     Dates: start: 20200717, end: 20200905
  103. DEXAMETHASONE [Concomitant]
     Active Substance: DEXAMETHASONE
     Dosage: UNK, SEVERAL TIMES A DAY
     Route: 061
     Dates: start: 20200908, end: 20200922
  104. DEXAMETHASONE [Concomitant]
     Active Substance: DEXAMETHASONE
     Dosage: UNK, SEVERAL TIMES A DAY
     Route: 061
     Dates: start: 20200925, end: 20201018
  105. MICONAZOLE [Concomitant]
     Active Substance: MICONAZOLE
     Dosage: 2.5 G, BID, AFTER DINNER AND BEFORE BEDTIME
     Route: 048
     Dates: start: 20200722, end: 20200722
  106. MICONAZOLE [Concomitant]
     Active Substance: MICONAZOLE
     Dosage: 2.5 G, QID, AFTER EACH MEAL AND BEFORE BEDTIME
     Route: 048
     Dates: start: 20200723, end: 20200804
  107. MICONAZOLE [Concomitant]
     Active Substance: MICONAZOLE
     Dosage: 2.5 G, BID, AFTER BREAKFAST AND LUNCH
     Route: 048
     Dates: start: 20200805, end: 20200805
  108. SODIUM BICARBONATE [Concomitant]
     Active Substance: SODIUM BICARBONATE
     Dosage: UNK UNK, TID
     Route: 049
     Dates: start: 20200722, end: 20200820
  109. SODIUM BICARBONATE [Concomitant]
     Active Substance: SODIUM BICARBONATE
     Dosage: UNK UNK, PRN
     Route: 049
     Dates: start: 20200817, end: 20200915
  110. SODIUM BICARBONATE [Concomitant]
     Active Substance: SODIUM BICARBONATE
     Dosage: UNK UNK, TID
     Route: 049
     Dates: start: 20200908, end: 20200923
  111. SODIUM BICARBONATE [Concomitant]
     Active Substance: SODIUM BICARBONATE
     Dosage: UNK UNK, PRN
     Route: 049
     Dates: start: 20200920, end: 20200923
  112. SODIUM BICARBONATE [Concomitant]
     Active Substance: SODIUM BICARBONATE
     Dosage: UNK UNK, TID
     Route: 049
     Dates: start: 20200925, end: 20201018
  113. ZOLPIDEM TARTRATE [Concomitant]
     Active Substance: ZOLPIDEM TARTRATE
     Dosage: 5 MG, PRN
     Route: 048
     Dates: start: 20200714, end: 20200725
  114. ETIZOLAM [Concomitant]
     Active Substance: ETIZOLAM
     Dosage: 0.5 MG, PRN
     Route: 048
     Dates: start: 20200714, end: 20200725
  115. LOXOPROFEN SODIUM DIHYDRATE [Concomitant]
     Active Substance: LOXOPROFEN SODIUM DIHYDRATE
     Dosage: 60 MG, PRN
     Route: 048
     Dates: start: 20200714, end: 20200829
  116. LOCOID [Concomitant]
     Active Substance: HYDROCORTISONE BUTYRATE
     Dosage: UNK UNK, BID
     Route: 061
     Dates: start: 20200819, end: 20200924
  117. ITRACONAZOLE [Concomitant]
     Active Substance: ITRACONAZOLE
     Dosage: 20 ML, QD, BEFORE BEDTIME
     Route: 048
     Dates: start: 20200826, end: 20201016
  118. AMMONIUM GLYCYRRHIZATE\GLYCINE\RACEMETHIONINE [Concomitant]
     Active Substance: AMMONIUM GLYCYRRHIZATE\GLYCINE\RACEMETHIONINE
     Dosage: 1 DF, TID, AFTER EACH MEAL
     Route: 048
     Dates: start: 20200826, end: 20201016
  119. XYZAL [Concomitant]
     Active Substance: LEVOCETIRIZINE DIHYDROCHLORIDE
     Dosage: 5 MG, PRN
     Route: 048
     Dates: start: 20200826, end: 20200924
  120. GLYCOSAMINOGLYCANS [Concomitant]
     Active Substance: GLYCOSAMINOGLYCANS
     Dosage: UNK, SEVERAL TIMES A DAY
     Route: 061
     Dates: start: 20200908, end: 20201007
  121. GLYCOSAMINOGLYCANS [Concomitant]
     Active Substance: GLYCOSAMINOGLYCANS
     Dosage: UNK, SEVERAL TIMES A DAY
     Route: 061
     Dates: start: 20200908, end: 20201007
  122. ISOTONIC SODIUM CHLORIDE SOLUTION [Concomitant]
     Active Substance: SODIUM CHLORIDE
     Dosage: UNK UNK, QD
     Route: 041
     Dates: start: 20200527
  123. GRANISETRON HYDROCHLORIDE [Concomitant]
     Active Substance: GRANISETRON HYDROCHLORIDE
     Dosage: UNK UNK, QD
     Route: 041
     Dates: start: 20200527
  124. ONCOVIN [Concomitant]
     Active Substance: VINCRISTINE SULFATE
     Indication: Adult T-cell lymphoma/leukaemia
     Dosage: 2 MG
     Route: 042
     Dates: start: 20200527
  125. DOXORUBICIN HYDROCHLORIDE [Concomitant]
     Active Substance: DOXORUBICIN HYDROCHLORIDE
     Indication: Adult T-cell lymphoma/leukaemia
     Dosage: 86 MG
     Route: 041
     Dates: start: 20200526
  126. CYCLOPHOSPHAMIDE [Concomitant]
     Active Substance: CYCLOPHOSPHAMIDE
     Indication: Adult T-cell lymphoma/leukaemia
     Dosage: 1250 MG
     Route: 041
     Dates: start: 20200527
  127. POLARAMINE [Concomitant]
     Active Substance: DEXCHLORPHENIRAMINE MALEATE
     Dosage: 5 MG
     Route: 041
     Dates: start: 20200601
  128. POLARAMINE [Concomitant]
     Active Substance: DEXCHLORPHENIRAMINE MALEATE
     Dosage: 5 MG, QD
     Route: 042
     Dates: start: 20200630, end: 20200703
  129. POLARAMINE [Concomitant]
     Active Substance: DEXCHLORPHENIRAMINE MALEATE
     Dosage: 5 MG, QD
     Route: 042
     Dates: start: 20200713, end: 20200716
  130. POLARAMINE [Concomitant]
     Active Substance: DEXCHLORPHENIRAMINE MALEATE
     Dosage: 5 MG, QD
     Route: 042
     Dates: start: 20200821, end: 20200824
  131. POLARAMINE [Concomitant]
     Active Substance: DEXCHLORPHENIRAMINE MALEATE
     Dosage: 5 MG, TID
     Route: 042
     Dates: start: 20200821, end: 20200821
  132. SOLU-MEDROL [Concomitant]
     Active Substance: METHYLPREDNISOLONE SODIUM SUCCINATE
     Dosage: 250 MG
     Route: 041
     Dates: start: 20200601
  133. STRONGER NEO-MINOPHAGEN C [Concomitant]
     Active Substance: AMMONIUM GLYCYRRHIZATE\CYSTEINE HYDROCHLORIDE\GLYCINE
     Dosage: 40 ML, QD
     Route: 042
     Dates: start: 20200630, end: 20200701
  134. HISHIPHAGEN [Concomitant]
     Dosage: 20 ML, QD
     Route: 042
     Dates: start: 20200702, end: 20200703
  135. HISHIPHAGEN [Concomitant]
     Dosage: 20 ML, QD
     Route: 042
     Dates: start: 20200713, end: 20200716
  136. HISHIPHAGEN [Concomitant]
     Dosage: 20 ML, QD
     Route: 042
     Dates: start: 20200821, end: 20200824

REACTIONS (3)
  - Skin disorder [Recovering/Resolving]
  - Otitis media [Recovering/Resolving]
  - Oedema [Recovering/Resolving]

NARRATIVE: CASE EVENT DATE: 20200611
